FAERS Safety Report 13032747 (Version 1)
Quarter: 2016Q4

REPORT INFORMATION
  Report Type: Spontaneous
  Country: US (occurrence: US)
  Receive Date: 20161215
  Receipt Date: 20161215
  Transmission Date: 20170207
  Serious: Yes (Hospitalization)
  Sender: FDA-Public Use
  Company Number: US-ELI_LILLY_AND_COMPANY-US201608000174

PATIENT
  Age: 55 Year
  Sex: Male

DRUGS (3)
  1. CYMBALTA [Suspect]
     Active Substance: DULOXETINE HYDROCHLORIDE
     Dosage: 30 MG, QD
     Route: 048
     Dates: start: 20130509
  2. CYMBALTA [Suspect]
     Active Substance: DULOXETINE HYDROCHLORIDE
     Dosage: 30 MG, QD
     Route: 048
     Dates: start: 20130711
  3. CYMBALTA [Suspect]
     Active Substance: DULOXETINE HYDROCHLORIDE
     Indication: DEPRESSION
     Dosage: UNK, UNKNOWN
     Route: 048

REACTIONS (13)
  - Insomnia [Unknown]
  - Irritability [Unknown]
  - Confusional state [Unknown]
  - Drug withdrawal syndrome [Unknown]
  - Lethargy [Unknown]
  - Suicidal ideation [Unknown]
  - Nausea [Unknown]
  - Agitation [Unknown]
  - Fatigue [Unknown]
  - Vomiting [Unknown]
  - Headache [Unknown]
  - Sensory disturbance [Unknown]
  - Dizziness [Unknown]

NARRATIVE: CASE EVENT DATE: 20140827
